FAERS Safety Report 5206908-1 (Version None)
Quarter: 2007Q1

REPORT INFORMATION
  Report Type: 
  Country: None (occurrence: None)
  Receive Date: 20070105
  Receipt Date: 20070105
  Transmission Date: 20070707
  Serious: Yes (Life-Threatening)
  Sender: FDA-Public Use
  Company Number: None

PATIENT
  Age: 78 Year
  Sex: Female
  Weight: 68 kg

DRUGS (17)
  1. HEPARIN [Suspect]
     Indication: ATRIAL FIBRILLATION
     Dosage: 700 U/HR  CI
     Dates: start: 20060809, end: 20060816
  2. ALPRAZOLAM [Concomitant]
  3. AMIODARONE HCL [Concomitant]
  4. ATORVASTATIN CALCIUM [Concomitant]
  5. INSULIN [Concomitant]
  6. CHLORTHIAZIDE TAB [Concomitant]
  7. DOCUSATE [Concomitant]
  8. FENTANYL TRANSDERMAL SYSTEM [Concomitant]
  9. FUROSEMIDE [Concomitant]
  10. K [Concomitant]
  11. LANSOPRAZOLE [Concomitant]
  12. METHIMAZOLE [Concomitant]
  13. MORPHINE [Concomitant]
  14. SENNA [Concomitant]
  15. ZINC [Concomitant]
  16. MILRINONE [Concomitant]
  17. TEN [Concomitant]

REACTIONS (4)
  - ACTIVATED PARTIAL THROMBOPLASTIN TIME PROLONGED [None]
  - CARDIAC TAMPONADE [None]
  - HAEMOGLOBIN DECREASED [None]
  - HAEMORRHAGE [None]
